FAERS Safety Report 11293904 (Version 4)
Quarter: 2015Q4

REPORT INFORMATION
  Report Type: Spontaneous
  Country: US (occurrence: US)
  Receive Date: 20150722
  Receipt Date: 20151022
  Transmission Date: 20160304
  Serious: Yes (Hospitalization, Disabling, Other)
  Sender: FDA-Public Use
  Company Number: US-CELGENEUS-USA-2015071856

PATIENT
  Age: 58 Year
  Sex: Female
  Weight: 49.7 kg

DRUGS (5)
  1. THALOMID [Suspect]
     Active Substance: THALIDOMIDE
     Route: 048
     Dates: start: 20140120, end: 201505
  2. PREDNISONE. [Concomitant]
     Active Substance: PREDNISONE
     Indication: PRODUCT USED FOR UNKNOWN INDICATION
     Dosage: TAPERED  80, 60, 40, 20MG
     Route: 065
  3. THALOMID [Suspect]
     Active Substance: THALIDOMIDE
     Indication: PLASMA CELL MYELOMA
     Route: 048
     Dates: start: 201311
  4. MELPHALAN [Concomitant]
     Active Substance: MELPHALAN
     Indication: PRODUCT USED FOR UNKNOWN INDICATION
     Route: 065
  5. THALOMID [Suspect]
     Active Substance: THALIDOMIDE
     Dosage: 12 MILLIGRAM
     Route: 048
     Dates: start: 201312

REACTIONS (6)
  - Intestinal obstruction [Unknown]
  - Failure to thrive [Unknown]
  - Abdominal pain [Unknown]
  - Constipation [Unknown]
  - Asthenia [Recovering/Resolving]
  - Weight decreased [Recovering/Resolving]

NARRATIVE: CASE EVENT DATE: 20150617
